FAERS Safety Report 11350350 (Version 1)
Quarter: 2015Q3

REPORT INFORMATION
  Report Type: Spontaneous
  Country: US (occurrence: None)
  Receive Date: 20150805
  Receipt Date: 20150805
  Transmission Date: 20151125
  Serious: No
  Sender: FDA-Public Use
  Company Number: None

PATIENT
  Age: 59 Year
  Sex: Male

DRUGS (10)
  1. LANSOPRAZOLE. [Concomitant]
     Active Substance: LANSOPRAZOLE
  2. ONDANSETRON [Concomitant]
     Active Substance: ONDANSETRON
  3. SIMVASTATIN. [Concomitant]
     Active Substance: SIMVASTATIN
  4. VORICONAZOLE. [Concomitant]
     Active Substance: VORICONAZOLE
  5. MAGNESIUM OXIDE. [Concomitant]
     Active Substance: MAGNESIUM OXIDE
  6. LORAZAPAM [Concomitant]
     Active Substance: LORAZEPAM
  7. TEMAZEPAM. [Concomitant]
     Active Substance: TEMAZEPAM
  8. OXYCODONE [Concomitant]
     Active Substance: OXYCODONE
  9. POTASSIUM CHLORIDE. [Concomitant]
     Active Substance: POTASSIUM CHLORIDE
  10. CYTARABINE. [Suspect]
     Active Substance: CYTARABINE
     Indication: NEOPLASM MALIGNANT
     Route: 042
     Dates: start: 20141204, end: 20141209

REACTIONS (5)
  - Dysarthria [None]
  - Ataxia [None]
  - Cerebellar syndrome [None]
  - Nervous system disorder [None]
  - Toxicity to various agents [None]

NARRATIVE: CASE EVENT DATE: 20141218
